FAERS Safety Report 9610679 (Version 3)
Quarter: 2013Q4

REPORT INFORMATION
  Report Type: Spontaneous
  Country: JP (occurrence: JP)
  Receive Date: 20131009
  Receipt Date: 20131115
  Transmission Date: 20140711
  Serious: Yes (Hospitalization, Other)
  Sender: FDA-Public Use
  Company Number: JP-B.I. PHARMACEUTICALS,INC./RIDGEFIELD-2013-BI-31919NB

PATIENT
  Age: 49 Year
  Sex: Male

DRUGS (6)
  1. PRAZAXA [Suspect]
     Indication: ATRIAL FIBRILLATION
     Dosage: 300 MG
     Route: 048
  2. MICOMBI COMBINATION [Suspect]
     Dosage: 1 ANZ
     Route: 048
     Dates: end: 20131008
  3. ADALAT [Suspect]
     Dosage: 60 MG
     Route: 048
  4. CARDENALIN [Suspect]
     Dosage: 8 MG
     Route: 048
  5. TENORMIN [Suspect]
     Dosage: 100 MG
     Route: 048
     Dates: end: 20131008
  6. SUNRYTHM / PILSICAINIDE HYDROCHLORIDE HYDRATE [Concomitant]
     Dosage: 150 MG
     Route: 048
     Dates: end: 20131008

REACTIONS (4)
  - Shock [Recovered/Resolved]
  - Altered state of consciousness [Recovered/Resolved]
  - Activated partial thromboplastin time prolonged [Unknown]
  - Renal disorder [Recovered/Resolved]
